FAERS Safety Report 4441802-5 (Version None)
Quarter: 2004Q3

REPORT INFORMATION
  Report Type: 
  Country: None (occurrence: None)
  Receive Date: 20040901
  Receipt Date: 20040823
  Transmission Date: 20050211
  Serious: Yes (Death)
  Sender: FDA-Public Use
  Company Number: 2004SE04751

PATIENT
  Age: 30 Year
  Sex: Male
  Weight: 109 kg

DRUGS (2)
  1. QUETIAPINE [Suspect]
     Indication: SCHIZOPHRENIA
     Dosage: 800 MG DAILY PO
     Route: 048
  2. VENLAFAXINE HCL [Concomitant]

REACTIONS (7)
  - DIABETES MELLITUS [None]
  - DIABETIC KETOACIDOSIS [None]
  - DRUG LEVEL DECREASED [None]
  - FOREIGN BODY ASPIRATION [None]
  - GASTRITIS [None]
  - HEPATIC STEATOSIS [None]
  - POISONING [None]
